FAERS Safety Report 22382361 (Version 2)
Quarter: 2023Q4

REPORT INFORMATION
  Report Type: Other
  Country: DE (occurrence: None)
  Receive Date: 20230530
  Receipt Date: 20231012
  Transmission Date: 20240110
  Serious: Yes (Other)
  Sender: FDA-Public Use
  Company Number: DE-ROCHE-2440382

PATIENT
  Age: 32 Year
  Sex: Female

DRUGS (9)
  1. OCREVUS [Suspect]
     Active Substance: OCRELIZUMAB
     Indication: Relapsing-remitting multiple sclerosis
     Route: 042
     Dates: start: 20180601
  2. OCREVUS [Suspect]
     Active Substance: OCRELIZUMAB
     Route: 042
     Dates: start: 20181206
  3. OCREVUS [Suspect]
     Active Substance: OCRELIZUMAB
     Route: 042
     Dates: start: 20200619
  4. OCREVUS [Suspect]
     Active Substance: OCRELIZUMAB
     Route: 042
     Dates: start: 20201221
  5. OCREVUS [Suspect]
     Active Substance: OCRELIZUMAB
     Route: 042
     Dates: start: 20210622
  6. OCREVUS [Suspect]
     Active Substance: OCRELIZUMAB
     Dosage: 7TH MAINTENANCE DOSE
     Route: 042
     Dates: start: 20211220
  7. DESFESOTERODINE SUCCINATE [Suspect]
     Active Substance: DESFESOTERODINE SUCCINATE
     Indication: Hypertonic bladder
     Route: 048
     Dates: start: 20210629
  8. PFIZER-BIONTECH COVID-19 VACCINE [Suspect]
     Active Substance: TOZINAMERAN
     Indication: COVID-19 immunisation
     Dosage: FIRST VACCINATION
     Route: 065
     Dates: start: 20210403
  9. AMITRIPTYLINE [Concomitant]
     Active Substance: AMITRIPTYLINE

REACTIONS (28)
  - Multiple sclerosis [Recovered/Resolved]
  - Fatigue [Not Recovered/Not Resolved]
  - Amnesia [Recovered/Resolved]
  - Restlessness [Not Recovered/Not Resolved]
  - Somnolence [Recovered/Resolved]
  - Insomnia [Not Recovered/Not Resolved]
  - Throat irritation [Recovered/Resolved]
  - Urinary tract infection [Recovered/Resolved]
  - Pain in extremity [Recovered/Resolved]
  - Chills [Recovered/Resolved]
  - Headache [Recovered/Resolved]
  - Rash [Recovered/Resolved]
  - Dizziness [Recovered/Resolved]
  - Erythema [Recovered/Resolved]
  - Blood pressure increased [Recovered/Resolved]
  - Heart rate increased [Recovered/Resolved]
  - Dyspepsia [Recovered/Resolved]
  - Initial insomnia [Not Recovered/Not Resolved]
  - Sleep disorder [Not Recovered/Not Resolved]
  - Pruritus [Recovering/Resolving]
  - Acne pustular [Recovering/Resolving]
  - Cough [Recovered/Resolved]
  - Cystitis noninfective [Recovered/Resolved]
  - Lymphadenitis [Recovered/Resolved]
  - Infection susceptibility increased [Not Recovered/Not Resolved]
  - Joint swelling [Not Recovered/Not Resolved]
  - Ligament rupture [Not Recovered/Not Resolved]
  - Fall [Unknown]

NARRATIVE: CASE EVENT DATE: 20181206
